FAERS Safety Report 7342436-5 (Version None)
Quarter: 2011Q1

REPORT INFORMATION
  Report Type: 
  Country: None (occurrence: None)
  Receive Date: 20110228
  Receipt Date: 20110208
  Transmission Date: 20110831
  Serious: Yes (Death)
  Sender: FDA-Public Use
  Company Number: 2011020087

PATIENT
  Age: 51 Year
  Sex: Female

DRUGS (9)
  1. CARISOPRODOL (CARISOPRODOL) [Suspect]
     Dosage: ORAL
     Route: 048
  2. BACLOFEN [Suspect]
     Dosage: ORAL
     Route: 048
  3. GABAPENTIN [Suspect]
     Dosage: ORAL
     Route: 048
  4. LAMOTRIGINE [Suspect]
     Dosage: ORAL
     Route: 048
  5. ACETAMINOPHEN/HYDROCODONE BITARTRATE [Suspect]
     Dosage: ORAL
     Route: 048
  6. DIAZEPAM [Suspect]
     Dosage: ORAL
     Route: 048
  7. LORAZEPAM [Suspect]
     Dosage: ORAL
     Route: 048
  8. TRAMADOL HCL [Suspect]
     Dosage: ORAL
     Route: 048
  9. TRAZODONE HCL [Suspect]
     Dosage: ORAL
     Route: 048

REACTIONS (1)
  - COMPLETED SUICIDE [None]
